FAERS Safety Report 25035208 (Version 1)
Quarter: 2025Q1

REPORT INFORMATION
  Report Type: Report from Study
  Country: DE (occurrence: DE)
  Receive Date: 20250304
  Receipt Date: 20250304
  Transmission Date: 20250408
  Serious: Yes (Hospitalization)
  Sender: RANBAXY
  Company Number: DE-SUN PHARMACEUTICAL INDUSTRIES LTD-2023RR-375732

PATIENT
  Age: 82 Year
  Sex: Male
  Weight: 77.1 kg

DRUGS (9)
  1. TILDRAKIZUMAB [Suspect]
     Active Substance: TILDRAKIZUMAB
     Indication: Psoriasis
     Dosage: 100 MILLIGRAM, DAILY
     Route: 058
     Dates: start: 20200409, end: 20220629
  2. ALLOPURINOL [Concomitant]
     Active Substance: ALLOPURINOL
     Indication: Product used for unknown indication
     Dosage: 1 DOSAGE FORM, DAILY
     Route: 048
  3. atorvastatin 100mg [Concomitant]
     Indication: Product used for unknown indication
     Dosage: 1 DOSAGE FORM, DAILY
     Route: 048
  4. ELIQUIS [Concomitant]
     Active Substance: APIXABAN
     Indication: Product used for unknown indication
     Dosage: 2 DOSAGE FORM, DAILY
     Route: 048
  5. FORMATRIS 6 ug [Concomitant]
     Indication: Product used for unknown indication
     Dosage: 2 DOSAGE FORM, DAILY
     Route: 048
  6. L-thyroxin 100 ug [Concomitant]
     Indication: Product used for unknown indication
     Dosage: 1 DOSAGE FORM, DAILY
     Route: 048
  7. moxonidin 0.3 mg [Concomitant]
     Indication: Product used for unknown indication
     Dosage: 1 DOSAGE FORM, DAILY
     Route: 048
  8. TORSEMIDE [Concomitant]
     Active Substance: TORSEMIDE
     Indication: Product used for unknown indication
     Dosage: 2 DOSAGE FORM, DAILY
     Route: 048
  9. VIGANTOL 1000IU [Concomitant]
     Indication: Product used for unknown indication
     Dosage: 1 DOSAGE FORM, DAILY
     Route: 048

REACTIONS (2)
  - Cardiac failure [Unknown]
  - Coronary artery disease [Recovered/Resolved]

NARRATIVE: CASE EVENT DATE: 20220908
